FAERS Safety Report 25626200 (Version 1)
Quarter: 2025Q3

REPORT INFORMATION
  Report Type: Report from Study
  Country: CN (occurrence: CN)
  Receive Date: 20250731
  Receipt Date: 20250731
  Transmission Date: 20251020
  Serious: Yes (Other)
  Sender: ROCHE
  Company Number: CN-ROCHE-3576033

PATIENT
  Age: 56 Year
  Sex: Female
  Weight: 62 kg

DRUGS (66)
  1. POLATUZUMAB VEDOTIN [Suspect]
     Active Substance: POLATUZUMAB VEDOTIN
     Indication: Diffuse large B-cell lymphoma
     Route: 042
     Dates: start: 20240329, end: 20240329
  2. POLATUZUMAB VEDOTIN [Suspect]
     Active Substance: POLATUZUMAB VEDOTIN
     Route: 042
     Dates: start: 20240523, end: 20240523
  3. POLATUZUMAB VEDOTIN [Suspect]
     Active Substance: POLATUZUMAB VEDOTIN
     Route: 042
     Dates: start: 20240426, end: 20240426
  4. RITUXIMAB [Suspect]
     Active Substance: RITUXIMAB
     Indication: Diffuse large B-cell lymphoma
     Route: 042
     Dates: start: 20240427, end: 20240427
  5. RITUXIMAB [Suspect]
     Active Substance: RITUXIMAB
     Route: 042
     Dates: start: 20240524, end: 20240524
  6. RITUXIMAB [Suspect]
     Active Substance: RITUXIMAB
     Route: 042
     Dates: start: 20240330, end: 20240330
  7. METHYLPREDNISOLONE [Suspect]
     Active Substance: METHYLPREDNISOLONE
     Indication: Diffuse large B-cell lymphoma
     Dosage: THERAPY START DATE 24-MAY-2024
     Route: 042
     Dates: start: 20240330, end: 20240404
  8. METHYLPREDNISOLONE [Suspect]
     Active Substance: METHYLPREDNISOLONE
     Route: 048
     Dates: start: 20240430, end: 20240504
  9. CYCLOPHOSPHAMIDE [Suspect]
     Active Substance: CYCLOPHOSPHAMIDE
     Indication: Diffuse large B-cell lymphoma
     Route: 042
  10. DOXORUBICIN HYDROCHLORIDE [Suspect]
     Active Substance: DOXORUBICIN HYDROCHLORIDE
     Indication: Diffuse large B-cell lymphoma
     Route: 042
  11. SODIUM BICARBONATE [Concomitant]
     Active Substance: SODIUM BICARBONATE
     Route: 042
     Dates: start: 20240424, end: 20240428
  12. SODIUM BICARBONATE [Concomitant]
     Active Substance: SODIUM BICARBONATE
     Route: 042
     Dates: start: 20240328, end: 20240402
  13. SODIUM BICARBONATE [Concomitant]
     Active Substance: SODIUM BICARBONATE
     Route: 042
     Dates: start: 20240521, end: 20240527
  14. SODIUM BICARBONATE [Concomitant]
     Active Substance: SODIUM BICARBONATE
     Route: 042
     Dates: start: 20240618, end: 20240621
  15. SODIUM BICARBONATE [Concomitant]
     Active Substance: SODIUM BICARBONATE
     Route: 042
     Dates: start: 20240715, end: 20240721
  16. SODIUM BICARBONATE [Concomitant]
     Active Substance: SODIUM BICARBONATE
     Route: 042
     Dates: start: 20240812, end: 20240816
  17. ESOMEPRAZOLE SODIUM [Concomitant]
     Active Substance: ESOMEPRAZOLE SODIUM
     Route: 042
     Dates: start: 20240424, end: 20240430
  18. ESOMEPRAZOLE SODIUM [Concomitant]
     Active Substance: ESOMEPRAZOLE SODIUM
     Route: 042
     Dates: start: 20240328, end: 20240404
  19. ESOMEPRAZOLE SODIUM [Concomitant]
     Active Substance: ESOMEPRAZOLE SODIUM
     Route: 042
     Dates: start: 20240524, end: 20240527
  20. ESOMEPRAZOLE SODIUM [Concomitant]
     Active Substance: ESOMEPRAZOLE SODIUM
     Route: 042
     Dates: start: 20240620, end: 20240625
  21. ESOMEPRAZOLE SODIUM [Concomitant]
     Active Substance: ESOMEPRAZOLE SODIUM
     Route: 042
     Dates: start: 20240717, end: 20240721
  22. ESOMEPRAZOLE SODIUM [Concomitant]
     Active Substance: ESOMEPRAZOLE SODIUM
     Route: 042
     Dates: start: 20240814, end: 20240816
  23. Tiopronin for injection [Concomitant]
     Route: 042
     Dates: start: 20240425, end: 20240430
  24. Tiopronin for injection [Concomitant]
     Route: 042
     Dates: start: 20240329, end: 20240404
  25. Tiopronin for injection [Concomitant]
     Route: 042
     Dates: start: 20240521, end: 20240527
  26. Methylprednisolone for injection [Concomitant]
     Route: 042
     Dates: start: 20240429, end: 20240430
  27. Methylprednisolone for injection [Concomitant]
     Route: 042
     Dates: start: 20240426, end: 20240426
  28. Methylprednisolone for injection [Concomitant]
     Route: 042
     Dates: start: 20240330, end: 20240404
  29. Methylprednisolone for injection [Concomitant]
     Route: 042
     Dates: start: 20240523, end: 20240523
  30. Methylprednisolone for injection [Concomitant]
     Route: 042
     Dates: start: 20240814, end: 20240814
  31. DIPHENHYDRAMINE [Concomitant]
     Active Substance: DIPHENHYDRAMINE
     Route: 030
     Dates: start: 20240329, end: 20240329
  32. pantoprazole sodium injection [Concomitant]
     Route: 042
     Dates: start: 20240329, end: 20240329
  33. CALCIUM GLUCONATE [Concomitant]
     Active Substance: CALCIUM GLUCONATE
     Route: 042
     Dates: start: 20240426, end: 20240427
  34. CALCIUM GLUCONATE [Concomitant]
     Active Substance: CALCIUM GLUCONATE
     Route: 042
     Dates: start: 20240329, end: 20240331
  35. CALCIUM GLUCONATE [Concomitant]
     Active Substance: CALCIUM GLUCONATE
     Route: 042
     Dates: start: 20240523, end: 20240523
  36. CALCIUM GLUCONATE [Concomitant]
     Active Substance: CALCIUM GLUCONATE
     Route: 042
     Dates: start: 20240620, end: 20240620
  37. CALCIUM GLUCONATE [Concomitant]
     Active Substance: CALCIUM GLUCONATE
     Route: 042
     Dates: start: 20240716, end: 20240716
  38. CALCIUM GLUCONATE [Concomitant]
     Active Substance: CALCIUM GLUCONATE
     Route: 042
     Dates: start: 20240814, end: 20240814
  39. Dexamethasone for injection [Concomitant]
     Route: 042
     Dates: start: 20240330, end: 20240330
  40. Dexamethasone for injection [Concomitant]
     Route: 042
     Dates: start: 20240524, end: 20240524
  41. Dexamethasone for injection [Concomitant]
     Route: 042
     Dates: start: 20240621, end: 20240621
  42. Anisodamine hydrobromide injection [Concomitant]
     Route: 030
     Dates: start: 20240331, end: 20240331
  43. Dexrazoxan for injection [Concomitant]
     Route: 042
     Dates: start: 20240401, end: 20240401
  44. Dexrazoxan for injection [Concomitant]
     Route: 042
     Dates: start: 20240717, end: 20240717
  45. Dexrazoxan for injection [Concomitant]
     Route: 042
     Dates: start: 20240815, end: 20240815
  46. MESNA [Concomitant]
     Active Substance: MESNA
     Route: 042
     Dates: start: 20240401, end: 20240401
  47. ondansetron inj [Concomitant]
     Route: 042
     Dates: start: 20240428, end: 20240428
  48. ondansetron inj [Concomitant]
     Route: 042
     Dates: start: 20240401, end: 20240401
  49. LACTULOSE [Concomitant]
     Active Substance: LACTULOSE
     Dosage: 15-30 ML
     Route: 048
     Dates: start: 20240331
  50. LACTULOSE [Concomitant]
     Active Substance: LACTULOSE
     Route: 048
     Dates: start: 20240526, end: 20240526
  51. Flurbiprofen gel paste [Concomitant]
     Dosage: MEDICATION ROUTE EXTERNAL USE
     Dates: start: 20240331
  52. ESZOPICLONE [Concomitant]
     Active Substance: ESZOPICLONE
     Route: 048
     Dates: start: 20240425, end: 20240506
  53. Inj Promethazine [Concomitant]
     Route: 030
     Dates: start: 20240426, end: 20240426
  54. Inj Promethazine [Concomitant]
     Route: 030
     Dates: start: 20240523, end: 20240523
  55. Inj Promethazine [Concomitant]
     Route: 030
     Dates: start: 20240620, end: 20240620
  56. Inj Promethazine [Concomitant]
     Route: 030
     Dates: start: 20240814, end: 20240814
  57. DEXAMETHASONE SODIUM PHOSPHATE [Concomitant]
     Active Substance: DEXAMETHASONE SODIUM PHOSPHATE
     Route: 042
     Dates: start: 20240427, end: 20240427
  58. ZOLPIDEM [Concomitant]
     Active Substance: ZOLPIDEM TARTRATE
     Route: 048
     Dates: start: 20240426
  59. BISOPROLOL [Concomitant]
     Active Substance: BISOPROLOL
     Route: 048
     Dates: start: 20240523
  60. Esomeprazole magnesium enteric coated tablets [Concomitant]
     Route: 048
     Dates: start: 20240430
  61. Esomeprazole magnesium enteric coated tablets [Concomitant]
     Route: 048
     Dates: start: 20240527
  62. MEXILETINE [Concomitant]
     Active Substance: MEXILETINE
     Route: 048
     Dates: start: 20240624
  63. diammonium glycyrrhizinate enteric-coated capsule [Concomitant]
     Route: 048
     Dates: start: 20240714, end: 20240721
  64. SULFAMETHOXAZOLE [Concomitant]
     Active Substance: SULFAMETHOXAZOLE
     Route: 048
     Dates: start: 20240715, end: 20240721
  65. leucogen tablet [Concomitant]
     Route: 048
     Dates: start: 20240624
  66. GRANULOCYTE COLONY-STIMULATING FACTOR NOS [Concomitant]
     Active Substance: GRANULOCYTE COLONY-STIMULATING FACTOR NOS

REACTIONS (12)
  - Myocardial ischaemia [Not Recovered/Not Resolved]
  - Hypoproteinaemia [Not Recovered/Not Resolved]
  - Hypokalaemia [Recovered/Resolved]
  - Pain [Recovered/Resolved]
  - Coagulopathy [Recovered/Resolved]
  - White blood cell count decreased [Recovered/Resolved]
  - Neutrophil count decreased [Recovered/Resolved]
  - Urinary tract infection [Not Recovered/Not Resolved]
  - Anaemia [Recovered/Resolved]
  - Lymphocyte count decreased [Not Recovered/Not Resolved]
  - Hypoglobulinaemia [Recovered/Resolved]
  - White blood cell count decreased [Recovered/Resolved]

NARRATIVE: CASE EVENT DATE: 20240331
